FAERS Safety Report 23129576 (Version 2)
Quarter: 2023Q4

REPORT INFORMATION
  Report Type: Other
  Country: US (occurrence: None)
  Receive Date: 20231031
  Receipt Date: 20231109
  Transmission Date: 20240110
  Serious: No
  Sender: FDA-Public Use
  Company Number: US-ROCHE-3446657

PATIENT
  Age: 60 Year
  Sex: Female

DRUGS (1)
  1. OCREVUS [Suspect]
     Active Substance: OCRELIZUMAB
     Indication: Relapsing-remitting multiple sclerosis
     Dosage: FIRST TIME IT WAS TWO HALF DOSES TWO WEEKS THEN EVERY 6 MONTHS (DOSE WAS NOT REPORTED)
     Route: 042
     Dates: start: 20220929

REACTIONS (1)
  - COVID-19 [Recovered/Resolved]

NARRATIVE: CASE EVENT DATE: 20231010
